FAERS Safety Report 15327352 (Version 2)
Quarter: 2018Q3

REPORT INFORMATION
  Report Type: Spontaneous
  Country: US (occurrence: US)
  Receive Date: 20180828
  Receipt Date: 20180914
  Transmission Date: 20181010
  Serious: Yes (Hospitalization)
  Sender: FDA-Public Use
  Company Number: US-TEVA-2018-US-948485

PATIENT
  Age: 17 Year
  Sex: Female

DRUGS (4)
  1. SUNITINIB MALATE. [Suspect]
     Active Substance: SUNITINIB MALATE
     Indication: METASTASES TO LIVER
     Route: 048
  2. SUNITINIB MALATE. [Suspect]
     Active Substance: SUNITINIB MALATE
     Indication: SOLID PSEUDOPAPILLARY TUMOUR OF THE PANCREAS
     Route: 048
  3. DOXORUBICIN [Suspect]
     Active Substance: DOXORUBICIN
     Indication: METASTASES TO LIVER
  4. DOXORUBICIN [Suspect]
     Active Substance: DOXORUBICIN
     Indication: SOLID PSEUDOPAPILLARY TUMOUR OF THE PANCREAS
     Dosage: CHEMO?EMBOLISATION DELIVERING THE DOSE OF 100?300 MICROM LC BEADS MIXED WITH 75 MG OF DOXORUBICIN
     Route: 050

REACTIONS (2)
  - Streptococcal bacteraemia [Unknown]
  - Liver abscess [Recovering/Resolving]
